FAERS Safety Report 8030411-7 (Version None)
Quarter: 2012Q1

REPORT INFORMATION
  Report Type: 
  Country: None (occurrence: None)
  Receive Date: 20120109
  Receipt Date: 20120109
  Transmission Date: 20120608
  Serious: No
  Sender: FDA-Public Use
  Company Number: None

PATIENT
  Sex: Female
  Weight: 68.038 kg

DRUGS (1)
  1. CYMBALTA [Suspect]
     Indication: BIPOLAR II DISORDER
     Dosage: 1 CAPSULE
     Route: 048
     Dates: start: 20100101, end: 20100301

REACTIONS (1)
  - ALOPECIA [None]
